FAERS Safety Report 22951629 (Version 2)
Quarter: 2023Q4

REPORT INFORMATION
  Report Type: Spontaneous
  Country: US (occurrence: US)
  Receive Date: 20230918
  Receipt Date: 20231003
  Transmission Date: 20240110
  Serious: Yes (Hospitalization, Disabling, Other)
  Sender: FDA-Public Use
  Company Number: US-009507513-2309USA004530

PATIENT
  Age: 69 Year
  Sex: Female
  Weight: 38.37 kg

DRUGS (3)
  1. KEYTRUDA [Suspect]
     Active Substance: PEMBROLIZUMAB
     Indication: Lung carcinoma cell type unspecified stage IV
     Dosage: 200 MILLIGRAM, EVERY 21 DAYS (Q3W)
     Route: 042
     Dates: start: 20230511, end: 20230629
  2. CARBOPLATIN [Concomitant]
     Active Substance: CARBOPLATIN
  3. PEMETREXED [Suspect]
     Active Substance: PEMETREXED

REACTIONS (1)
  - Vasculitis [Not Recovered/Not Resolved]

NARRATIVE: CASE EVENT DATE: 20230701
